FAERS Safety Report 10386233 (Version 6)
Quarter: 2014Q3

REPORT INFORMATION
  Report Type: Report from Study
  Country: CA (occurrence: CA)
  Receive Date: 20140814
  Receipt Date: 20140930
  Transmission Date: 20150326
  Serious: Yes (Death, Hospitalization, Other)
  Sender: FDA-Public Use
  Company Number: PHHY2013CA109353

PATIENT
  Age: 67 Year
  Sex: Male

DRUGS (1)
  1. SANDOSTATIN LAR DEPOT [Suspect]
     Active Substance: OCTREOTIDE ACETATE
     Indication: NEUROENDOCRINE TUMOUR
     Dosage: 20 MG, QMO
     Route: 030
     Dates: start: 20130704, end: 20140908

REACTIONS (28)
  - Abdominal rigidity [Unknown]
  - Prostatic disorder [Unknown]
  - Fatigue [Unknown]
  - Abdominal pain [Unknown]
  - Death [Fatal]
  - Hepatic neoplasm [Recovering/Resolving]
  - Pallor [Unknown]
  - Blood pressure diastolic decreased [Recovered/Resolved]
  - Nausea [Not Recovered/Not Resolved]
  - Cystitis [Unknown]
  - Pollakiuria [Unknown]
  - Pain [Unknown]
  - Pain in extremity [Unknown]
  - Memory impairment [Unknown]
  - Dyspnoea exertional [Not Recovered/Not Resolved]
  - Thrombosis [Unknown]
  - Malignant neoplasm progression [Unknown]
  - Dysuria [Unknown]
  - Peripheral swelling [Unknown]
  - Localised intraabdominal fluid collection [Unknown]
  - Flushing [Not Recovered/Not Resolved]
  - Blood pressure increased [Unknown]
  - Malaise [Unknown]
  - Localised infection [Unknown]
  - Asthenia [Not Recovered/Not Resolved]
  - Diarrhoea [Not Recovered/Not Resolved]
  - Abdominal distension [Unknown]
  - Bladder pain [Not Recovered/Not Resolved]

NARRATIVE: CASE EVENT DATE: 201309
